FAERS Safety Report 6621496-0 (Version None)
Quarter: 2010Q1

REPORT INFORMATION
  Report Type: 
  Country: None (occurrence: None)
  Receive Date: 20100309
  Receipt Date: 20100223
  Transmission Date: 20100710
  Serious: Yes (Death)
  Sender: FDA-Public Use
  Company Number: US-TYCO HEALTHCARE/MALLINCKRODT-T201000697

PATIENT
  Age: 25 Year
  Sex: Male

DRUGS (7)
  1. METHADOSE [Interacting]
  2. SERTRALINE HCL [Interacting]
     Indication: ANXIETY DISORDER
     Route: 048
  3. MARIJUANA [Suspect]
  4. LORAZEPAM [Interacting]
  5. BUSPIRONE HCL [Interacting]
  6. GUAIFENESIN [Interacting]
  7. MELATONIN [Interacting]

REACTIONS (4)
  - BRAIN OEDEMA [None]
  - DRUG INTERACTION [None]
  - INTENTIONAL DRUG MISUSE [None]
  - PULMONARY OEDEMA [None]
